FAERS Safety Report 8065611-3 (Version None)
Quarter: 2011Q4

REPORT INFORMATION
  Report Type: 
  Country: None (occurrence: None)
  Receive Date: 20111221
  Receipt Date: 20101228
  Transmission Date: 20120403
  Serious: Yes (Hospitalization, Other)
  Sender: FDA-Public Use
  Company Number: PHHY2010US89414

PATIENT
  Age: 28 Year
  Sex: Female

DRUGS (1)
  1. EXJADE [Suspect]
     Dosage: 1250 MG, DAILY, ORAL
     Route: 048

REACTIONS (4)
  - SICKLE CELL ANAEMIA WITH CRISIS [None]
  - SERUM FERRITIN INCREASED [None]
  - WRONG TECHNIQUE IN DRUG USAGE PROCESS [None]
  - DRUG DOSE OMISSION [None]
